FAERS Safety Report 19244350 (Version 1)
Quarter: 2021Q2

REPORT INFORMATION
  Report Type: Spontaneous
  Country: GB (occurrence: GB)
  Receive Date: 20210512
  Receipt Date: 20210512
  Transmission Date: 20210717
  Serious: Yes (Life-Threatening, Other)
  Sender: FDA-Public Use
  Company Number: GB-JNJFOC-20210517738

PATIENT
  Age: 70 Year
  Sex: Male

DRUGS (2)
  1. XARELTO [Suspect]
     Active Substance: RIVAROXABAN
     Indication: PRODUCT USED FOR UNKNOWN INDICATION
     Route: 048
  2. ASTRAZENECA COVID?19 VACCINE [Suspect]
     Active Substance: AZD-1222
     Dosage: UNK
     Dates: start: 20210430

REACTIONS (5)
  - Head injury [Recovered/Resolved]
  - Pneumonia [Recovered/Resolved]
  - Infection [Recovered/Resolved]
  - Chest pain [Recovered/Resolved with Sequelae]
  - Embolism [Recovered/Resolved]

NARRATIVE: CASE EVENT DATE: 20210501
